FAERS Safety Report 13361891 (Version 1)
Quarter: 2017Q1

REPORT INFORMATION
  Report Type: Other
  Country: MX (occurrence: MX)
  Receive Date: 20170323
  Receipt Date: 20170323
  Transmission Date: 20170429
  Serious: Yes (Hospitalization, Other)
  Sender: FDA-Public Use
  Company Number: MX-SHIRE-MX201706320

PATIENT
  Age: 10 Year
  Sex: Male
  Weight: 26.5 kg

DRUGS (1)
  1. ELAPRASE [Suspect]
     Active Substance: IDURSULFASE
     Indication: MUCOPOLYSACCHARIDOSIS II
     Dosage: (12 MG) 2 VIALS IN 100 ML OF NACL FOR 4 HOURS, UNKNOWN FREQUENCY
     Route: 041
     Dates: start: 20141101

REACTIONS (3)
  - Gastrooesophageal reflux disease [Recovering/Resolving]
  - Anxiety [Unknown]
  - Dysphagia [Unknown]

NARRATIVE: CASE EVENT DATE: 20170310
